FAERS Safety Report 25873035 (Version 1)
Quarter: 2025Q4

REPORT INFORMATION
  Report Type: Spontaneous
  Country: US (occurrence: None)
  Receive Date: 20251001
  Receipt Date: 20251001
  Transmission Date: 20260118
  Serious: Yes (Hospitalization)
  Sender: FDA-CTU
  Company Number: None

PATIENT
  Age: 82 Year
  Sex: Male
  Weight: 94.5 kg

DRUGS (12)
  1. COLLAGENASE SANTYL [Suspect]
     Active Substance: COLLAGENASE CLOSTRIDIUM HISTOLYTICUM
     Dosage: FREQUENCY : DAILY;?
     Route: 061
     Dates: start: 20241122
  2. GABAPENTIN [Concomitant]
     Active Substance: GABAPENTIN
  3. METOPROLOL [Concomitant]
     Active Substance: METOPROLOL
  4. TAMSULOSIN [Concomitant]
     Active Substance: TAMSULOSIN
  5. METFORMIN [Concomitant]
     Active Substance: METFORMIN HYDROCHLORIDE
  6. ROSUVASTATIN [Concomitant]
     Active Substance: ROSUVASTATIN
  7. XARELTO [Concomitant]
     Active Substance: RIVAROXABAN
  8. Beet Chews [Concomitant]
  9. DIETARY SUPPLEMENT [Concomitant]
     Active Substance: DIETARY SUPPLEMENT
  10. VITAMIN C [Concomitant]
     Active Substance: ASCORBIC ACID
  11. Diabetes Health Pack [Concomitant]
  12. LANTUS [Concomitant]
     Active Substance: INSULIN GLARGINE

REACTIONS (1)
  - Amputation [None]

NARRATIVE: CASE EVENT DATE: 20250909
